FAERS Safety Report 15536877 (Version 1)
Quarter: 2018Q4

REPORT INFORMATION
  Report Type: Spontaneous
  Country: US (occurrence: US)
  Receive Date: 20181022
  Receipt Date: 20181022
  Transmission Date: 20190205
  Serious: No
  Sender: FDA-Public Use
  Company Number: US-PFIZER INC-2018420719

PATIENT
  Age: 35 Year
  Sex: Female
  Weight: 72.57 kg

DRUGS (2)
  1. LYRICA [Suspect]
     Active Substance: PREGABALIN
     Indication: SPONDYLITIS
     Dosage: 75 MG, UNK
  2. LYRICA [Suspect]
     Active Substance: PREGABALIN
     Indication: PARAESTHESIA
     Dosage: 150 MG, 2X/DAY (TWICE A DAY)
     Route: 048

REACTIONS (3)
  - Muscle spasms [Unknown]
  - Paraesthesia [Unknown]
  - Condition aggravated [Unknown]
